FAERS Safety Report 4549481-3 (Version None)
Quarter: 2005Q1

REPORT INFORMATION
  Report Type: 
  Country: None (occurrence: None)
  Receive Date: 20050106
  Receipt Date: 20041230
  Transmission Date: 20050727
  Serious: No
  Sender: FDA-Public Use
  Company Number: 2004SE07284

PATIENT
  Age: 81 Year
  Sex: Female

DRUGS (7)
  1. SIMESTAT [Suspect]
     Indication: HYPERCHOLESTEROLAEMIA
     Dosage: 10 MG DAILY PO
     Route: 048
     Dates: start: 20040911, end: 20041015
  2. LASIX [Concomitant]
  3. VASCOMAN [Concomitant]
  4. CORDIOASPIRIN [Concomitant]
  5. DELAPRIDE [Concomitant]
  6. ATENOLOL [Concomitant]
  7. ALLOPURINOL [Concomitant]

REACTIONS (7)
  - ANOREXIA [None]
  - AZOTAEMIA [None]
  - BLOOD CREATININE INCREASED [None]
  - CHRONIC HEPATITIS [None]
  - DYSPEPSIA [None]
  - HEPATITIS ACUTE [None]
  - NAUSEA [None]
